FAERS Safety Report 5179779-X (Version None)
Quarter: 2006Q4

REPORT INFORMATION
  Report Type: 
  Country: None (occurrence: None)
  Receive Date: 20061212
  Receipt Date: 20061201
  Transmission Date: 20070319
  Serious: Yes (Hospitalization, Disabling, Other)
  Sender: FDA-Public Use
  Company Number: 2006149741

PATIENT
  Age: 1 Day
  Sex: Male
  Weight: 3.9 kg

DRUGS (3)
  1. XANAX [Suspect]
     Dosage: 0.5 MG, PLACENTAL
     Route: 064
     Dates: start: 20050921, end: 20060615
  2. SUBUTEX [Suspect]
     Dosage: 4 MG, PLACENTAL
     Route: 064
     Dates: start: 20050921, end: 20060615
  3. ZOPICLONE (ZOPICLONE) [Concomitant]

REACTIONS (15)
  - AGITATION NEONATAL [None]
  - AMNIOCENTESIS ABNORMAL [None]
  - CLEFT PALATE [None]
  - CONGENITAL HEARING DISORDER [None]
  - CONGENITAL JAW MALFORMATION [None]
  - DRUG EFFECT DECREASED [None]
  - DRUG EXPOSURE DURING PREGNANCY [None]
  - DRUG WITHDRAWAL SYNDROME NEONATAL [None]
  - HYPERTONIA NEONATAL [None]
  - MICROGNATHIA [None]
  - NEONATAL RESPIRATORY DISTRESS SYNDROME [None]
  - PARESIS [None]
  - PIERRE ROBIN SYNDROME [None]
  - PILONIDAL CYST CONGENITAL [None]
  - RETROGNATHIA [None]
